FAERS Safety Report 8391313-X (Version None)
Quarter: 2012Q2

REPORT INFORMATION
  Report Type: 
  Country: None (occurrence: None)
  Receive Date: 20120515
  Receipt Date: 20120502
  Transmission Date: 20120825
  Serious: Yes (Hospitalization)
  Sender: FDA-Public Use
  Company Number: 2012SP023596

PATIENT
  Age: 83 Year
  Sex: Female

DRUGS (8)
  1. MIRTAZAPINE [Suspect]
     Indication: MAJOR DEPRESSION
     Dosage: 15 MG;QD;PO
     Route: 048
     Dates: start: 20120306, end: 20120321
  2. PROPRANOLOL [Concomitant]
  3. LORAZEPAM [Concomitant]
  4. CALCIUM CARBONATE [Concomitant]
  5. LEVOTHYROXINE SODIUM [Concomitant]
  6. ULTRACET [Suspect]
     Indication: PAIN
     Dosage: PO
     Route: 048
     Dates: start: 20120306, end: 20120321
  7. MOTILIUM [Concomitant]
  8. AMLODIPINE BESYLATE [Concomitant]

REACTIONS (3)
  - AGGRESSION [None]
  - AGITATION [None]
  - CONFUSIONAL STATE [None]
